FAERS Safety Report 14436043 (Version 1)
Quarter: 2018Q1

REPORT INFORMATION
  Report Type: Spontaneous
  Country: US (occurrence: US)
  Receive Date: 20180124
  Receipt Date: 20180124
  Transmission Date: 20180509
  Serious: Yes (Other)
  Sender: FDA-Public Use
  Company Number: None

PATIENT
  Age: 23 Year
  Sex: Female

DRUGS (4)
  1. FENTANYL CITRATE. [Concomitant]
     Active Substance: FENTANYL CITRATE
  2. MIDAZOLAM [Concomitant]
     Active Substance: MIDAZOLAM HYDROCHLORIDE
  3. HEPARIN [Concomitant]
     Active Substance: HEPARIN SODIUM
  4. OMNIPAQUE [Suspect]
     Active Substance: IOHEXOL
     Dates: start: 20180123, end: 20180123

REACTIONS (9)
  - Chills [None]
  - Lethargy [None]
  - Eye movement disorder [None]
  - Blood pressure increased [None]
  - Seizure [None]
  - Heart rate increased [None]
  - Tremor [None]
  - Neck pain [None]
  - Contrast media reaction [None]

NARRATIVE: CASE EVENT DATE: 20180123
